FAERS Safety Report 8307965-6 (Version None)
Quarter: 2012Q2

REPORT INFORMATION
  Report Type: 
  Country: None (occurrence: None)
  Receive Date: 20120424
  Receipt Date: 20120416
  Transmission Date: 20120825
  Serious: Yes (Hospitalization)
  Sender: FDA-Public Use
  Company Number: US-GLAXOSMITHKLINE-A0964649A

PATIENT
  Age: 55 Year
  Sex: Male

DRUGS (1)
  1. AVANDAMET [Suspect]
     Indication: DIABETES MELLITUS
     Route: 048
     Dates: start: 20070201, end: 20100222

REACTIONS (6)
  - CORONARY ARTERY OCCLUSION [None]
  - CHEST DISCOMFORT [None]
  - CORONARY ARTERY REOCCLUSION [None]
  - VASCULAR GRAFT OCCLUSION [None]
  - ARRHYTHMIA [None]
  - CORONARY ARTERY BYPASS [None]
